FAERS Safety Report 10014355 (Version 1)
Quarter: 2014Q1

REPORT INFORMATION
  Report Type: Spontaneous
  Country: US (occurrence: US)
  Receive Date: 20140317
  Receipt Date: 20140317
  Transmission Date: 20141002
  Serious: No
  Sender: FDA-Public Use
  Company Number: US-BIOGENIDEC-2014BI021952

PATIENT
  Sex: Female

DRUGS (8)
  1. TECFIDERA [Suspect]
     Indication: MULTIPLE SCLEROSIS
     Route: 048
     Dates: start: 20140206, end: 20140212
  2. TECFIDERA [Suspect]
     Indication: MULTIPLE SCLEROSIS
     Route: 048
     Dates: start: 20140213
  3. MECLIZINE [Concomitant]
  4. XANAX [Concomitant]
  5. ZOLOFT [Concomitant]
  6. NUVIGIL [Concomitant]
  7. VITAMIN E [Concomitant]
  8. FLAX SEED OIL [Concomitant]

REACTIONS (1)
  - Constipation [Unknown]
